FAERS Safety Report 10020920 (Version 1)
Quarter: 2014Q1

REPORT INFORMATION
  Report Type: Spontaneous
  Country: DE (occurrence: None)
  Receive Date: 20140313
  Receipt Date: 20140313
  Transmission Date: 20141002
  Serious: Yes (Death)
  Sender: FDA-Public Use
  Company Number: AUR-APL-2014-02297

PATIENT
  Age: 46 Year
  Sex: Female
  Weight: 78 kg

DRUGS (2)
  1. OLANZAPINE [Suspect]
     Indication: PSYCHOTIC DISORDER
     Route: 048
  2. TASIGNA [Suspect]
     Indication: CHRONIC MYELOID LEUKAEMIA
     Route: 048
     Dates: start: 201302

REACTIONS (6)
  - Thrombotic thrombocytopenic purpura [None]
  - Glomerular filtration rate decreased [None]
  - Haemoglobin decreased [None]
  - Blood bilirubin increased [None]
  - Blood lactate dehydrogenase increased [None]
  - Condition aggravated [None]
